FAERS Safety Report 26110089 (Version 1)
Quarter: 2025Q4

REPORT INFORMATION
  Report Type: Spontaneous
  Country: US (occurrence: US)
  Receive Date: 20251201
  Receipt Date: 20251201
  Transmission Date: 20260117
  Serious: Yes (Hospitalization, Other)
  Sender: Haleon PLC
  Company Number: US-HALEON-2276623

PATIENT
  Age: 30 Year
  Sex: Female

DRUGS (3)
  1. ACETAMINOPHEN [Suspect]
     Active Substance: ACETAMINOPHEN
     Indication: Pain
  2. METHAMPHETAMINE [Concomitant]
     Active Substance: METHAMPHETAMINE
     Indication: Product used for unknown indication
  3. FENTANYL [Concomitant]
     Active Substance: FENTANYL
     Indication: Product used for unknown indication

REACTIONS (10)
  - Acute hepatic failure [Recovering/Resolving]
  - Encephalopathy [Recovering/Resolving]
  - Coagulopathy [Recovering/Resolving]
  - Overdose [Unknown]
  - Agitation [Recovering/Resolving]
  - Liver injury [Recovering/Resolving]
  - Jaundice [Recovering/Resolving]
  - Drug-induced liver injury [Recovering/Resolving]
  - Confusional state [Recovering/Resolving]
  - Tachycardia [Recovering/Resolving]
